FAERS Safety Report 10178060 (Version 1)
Quarter: 2014Q2

REPORT INFORMATION
  Report Type: Spontaneous
  Country: JP (occurrence: JP)
  Receive Date: 20140518
  Receipt Date: 20140518
  Transmission Date: 20141212
  Serious: No
  Sender: FDA-Public Use
  Company Number: PHHY2014JP057998

PATIENT
  Sex: Male

DRUGS (2)
  1. LAMISIL [Suspect]
     Dosage: UNK UKN, UNK
  2. BACCIDAL [Concomitant]
     Dosage: UNK UKN, UNK

REACTIONS (1)
  - Drug dispensing error [Unknown]
